FAERS Safety Report 4772843-6 (Version None)
Quarter: 2005Q3

REPORT INFORMATION
  Report Type: 
  Country: None (occurrence: None)
  Receive Date: 20050919
  Receipt Date: 20050427
  Transmission Date: 20060218
  Serious: Yes (Hospitalization)
  Sender: FDA-Public Use
  Company Number: US-MERCK-0505USA00264

PATIENT
  Age: 42 Year
  Sex: Female
  Weight: 59 kg

DRUGS (8)
  1. VIOXX [Suspect]
     Indication: BACK PAIN
     Route: 048
     Dates: start: 19990101, end: 20020101
  2. VIOXX [Suspect]
     Indication: NECK PAIN
     Route: 048
     Dates: start: 19990101, end: 20020101
  3. LO/OVRAL [Concomitant]
     Route: 048
  4. PROVENTIL [Concomitant]
     Route: 055
  5. PREVACID [Concomitant]
     Route: 065
  6. PAXIL [Concomitant]
     Route: 065
     Dates: start: 20020101
  7. WELLBUTRIN [Concomitant]
     Route: 065
     Dates: start: 19980101
  8. ZELNORM [Concomitant]
     Route: 065

REACTIONS (16)
  - ACUTE MYOCARDIAL INFARCTION [None]
  - ANGINA UNSTABLE [None]
  - ANXIETY [None]
  - ARTHROPATHY [None]
  - CAMPYLOBACTER INFECTION [None]
  - CARDIAC ARREST [None]
  - CORONARY ARTERY DISEASE [None]
  - DEPRESSION [None]
  - DYSPNOEA [None]
  - GASTROOESOPHAGEAL REFLUX DISEASE [None]
  - MENOMETRORRHAGIA [None]
  - OVARIAN CYST [None]
  - PLEURAL EFFUSION [None]
  - PNEUMONIA [None]
  - POST-TRAUMATIC STRESS DISORDER [None]
  - VENTRICULAR FIBRILLATION [None]
